FAERS Safety Report 6317982-3 (Version None)
Quarter: 2009Q3

REPORT INFORMATION
  Report Type: 
  Country: None (occurrence: None)
  Receive Date: 20090821
  Receipt Date: 20090813
  Transmission Date: 20100115
  Serious: Yes (Hospitalization)
  Sender: FDA-Public Use
  Company Number: FR-PFIZER INC-2009254173

PATIENT
  Age: 57 Year

DRUGS (12)
  1. TAHOR [Suspect]
     Indication: DYSLIPIDAEMIA
     Dosage: 10 MG, 1X/DAY
     Route: 048
  2. KARDEGIC [Suspect]
     Dosage: 75 MG, 1X/DAY
     Route: 048
  3. PLAVIX [Suspect]
     Dosage: 75 MG, 1X/DAY
     Route: 048
  4. CARDENSIEL [Suspect]
     Dosage: 5 MG, 2X/DAY
     Route: 048
  5. NEXIUM [Suspect]
     Dosage: 20 MG, 1X/DAY
     Route: 048
  6. LASIX [Suspect]
     Dosage: 20 MG, 1X/DAY
     Route: 048
  7. DAONIL [Suspect]
     Dosage: 5 MG, 2X/DAY
     Route: 048
  8. GLUCOPHAGE [Suspect]
     Dosage: 850 MG, 2X/DAY
  9. DEROXAT [Suspect]
     Dosage: 20 MG, 1X/DAY
     Route: 048
  10. COVERSYL [Suspect]
     Dosage: 1 DF, UNK
  11. LEXOMIL [Suspect]
     Dosage: 12 MG, UNK
     Route: 048
  12. NICOPATCH [Suspect]
     Dosage: UNK
     Route: 062

REACTIONS (1)
  - TOXIC SKIN ERUPTION [None]
